FAERS Safety Report 9795435 (Version 1)
Quarter: 2014Q1

REPORT INFORMATION
  Report Type: Spontaneous
  Country: FR (occurrence: FR)
  Receive Date: 20140103
  Receipt Date: 20140103
  Transmission Date: 20141002
  Serious: Yes (Hospitalization)
  Sender: FDA-Public Use
  Company Number: FR-JNJFOC-20140100369

PATIENT
  Age: 90 Year
  Sex: Female

DRUGS (6)
  1. XARELTO [Suspect]
     Indication: PRODUCT USED FOR UNKNOWN INDICATION
     Route: 048
     Dates: start: 20131216
  2. XARELTO [Suspect]
     Indication: PRODUCT USED FOR UNKNOWN INDICATION
     Route: 048
     Dates: start: 201307, end: 20131018
  3. BISOPROLOL [Concomitant]
     Route: 048
  4. LAROXYL [Concomitant]
     Route: 002
  5. LASILIX [Concomitant]
     Route: 048
  6. BROMAZEPAM [Concomitant]
     Route: 048

REACTIONS (2)
  - Microcytic anaemia [Recovering/Resolving]
  - Cardiac failure [Recovered/Resolved]
